FAERS Safety Report 11911312 (Version 1)
Quarter: 2016Q1

REPORT INFORMATION
  Report Type: Spontaneous
  Country: US (occurrence: US)
  Receive Date: 20160112
  Receipt Date: 20160112
  Transmission Date: 20160526
  Serious: No
  Sender: FDA-Public Use
  Company Number: US-AMNEAL PHARMACEUTICALS-2015AMN00154

PATIENT
  Sex: Female
  Weight: 88.44 kg

DRUGS (9)
  1. OXYCODONE AND ACETAMINOPHEN [Suspect]
     Active Substance: ACETAMINOPHEN\OXYCODONE HYDROCHLORIDE
     Indication: NEUROPATHY PERIPHERAL
     Dosage: UNK
  2. LYRICA [Suspect]
     Active Substance: PREGABALIN
     Indication: NEUROPATHY PERIPHERAL
  3. TRAZODONE [Concomitant]
     Active Substance: TRAZODONE HYDROCHLORIDE
     Indication: INSOMNIA
     Dosage: 1 TABLETS, 1X/DAY, AT BEDTIME
  4. GABAPENTIN (GLENMARK) [Suspect]
     Active Substance: GABAPENTIN
     Indication: NEUROPATHY PERIPHERAL
  5. CYMBALTA [Concomitant]
     Active Substance: DULOXETINE HYDROCHLORIDE
     Dosage: 60 MG, 2X/DAY
     Dates: start: 2005
  6. OXYCODONE AND ACETAMINOPHEN [Suspect]
     Active Substance: ACETAMINOPHEN\OXYCODONE HYDROCHLORIDE
     Indication: FIBROMYALGIA
     Dosage: 3 TABLETS, 1X/DAY
     Route: 048
     Dates: start: 2015
  7. LYRICA [Suspect]
     Active Substance: PREGABALIN
     Indication: FIBROMYALGIA
     Dosage: 600 MG, 2X/DAY (2 CAPSULES IN AM AND 2 CAPSULES IN PM)
     Route: 048
     Dates: start: 2005, end: 201505
  8. CEFADROXIL 1000 [Concomitant]
     Indication: ARTHRITIS BACTERIAL
     Dosage: 1000 MG, 2X/DAY
  9. GABAPENTIN (GLENMARK) [Suspect]
     Active Substance: GABAPENTIN
     Indication: FIBROMYALGIA
     Dosage: 1100 MG, 3X/DAY
     Route: 048
     Dates: start: 199605

REACTIONS (1)
  - Drug ineffective [Not Recovered/Not Resolved]
